FAERS Safety Report 4566530-7 (Version None)
Quarter: 2005Q1

REPORT INFORMATION
  Report Type: 
  Country: None (occurrence: None)
  Receive Date: 20050126
  Receipt Date: 20050126
  Transmission Date: 20050727
  Serious: Yes (Death, Life-Threatening, Hospitalization)
  Sender: FDA-Public Use
  Company Number: None

PATIENT
  Age: 76 Year
  Sex: Male
  Weight: 117 kg

DRUGS (12)
  1. DROTRECOGIN ALFA   20MG   LILLY [Suspect]
     Indication: MULTI-ORGAN FAILURE
     Dosage: 24 MCG/KG/HR   X 96 HOURS   INTRAVENOU
     Route: 042
     Dates: start: 20030908, end: 20030912
  2. DROTRECOGIN ALFA   20MG   LILLY [Suspect]
     Indication: SEPSIS
     Dosage: 24 MCG/KG/HR   X 96 HOURS   INTRAVENOU
     Route: 042
     Dates: start: 20030908, end: 20030912
  3. HEPARIN [Concomitant]
  4. DOBUTAMINE HCL [Concomitant]
  5. NOREPINEPHRINE [Concomitant]
  6. ERYTHROPOETIN ALPHA [Concomitant]
  7. PANTOPRAZOLE [Concomitant]
  8. CVVHD [Concomitant]
  9. SODIUM CITRATE ANTICOAGULANT [Concomitant]
  10. CASPOFUNGIN [Concomitant]
  11. PIPERACILLIN/TAZOBACTAM [Concomitant]
  12. TPN [Concomitant]

REACTIONS (12)
  - ABDOMINAL HAEMATOMA [None]
  - BILE DUCT OBSTRUCTION [None]
  - BLOOD BILIRUBIN INCREASED [None]
  - HAEMODIALYSIS [None]
  - INTRA-ABDOMINAL HAEMORRHAGE [None]
  - MULTI-ORGAN FAILURE [None]
  - POST PROCEDURAL BILE LEAK [None]
  - POST PROCEDURAL COMPLICATION [None]
  - RENAL FAILURE [None]
  - RESPIRATORY FAILURE [None]
  - SEPSIS [None]
  - THROMBOCYTOPENIA [None]
